FAERS Safety Report 7526695-1 (Version None)
Quarter: 2011Q2

REPORT INFORMATION
  Report Type: 
  Country: None (occurrence: None)
  Receive Date: 20110606
  Receipt Date: 20110524
  Transmission Date: 20111010
  Serious: Yes (Hospitalization)
  Sender: FDA-Public Use
  Company Number: FR-ELI_LILLY_AND_COMPANY-FR201105006555

PATIENT
  Age: 36 Year
  Sex: Female

DRUGS (5)
  1. ZYPREXA [Suspect]
     Dosage: UNK
     Route: 048
     Dates: start: 20110117, end: 20110126
  2. OXACILLIN [Concomitant]
     Dosage: UNK
     Route: 042
     Dates: start: 20110124, end: 20110209
  3. LOVENOX [Concomitant]
     Dosage: UNK
     Route: 058
     Dates: start: 20110101, end: 20110206
  4. FLAGYL [Concomitant]
     Dosage: UNK
     Route: 048
     Dates: start: 20110126, end: 20110202
  5. UMULINE [Suspect]
     Dosage: UNK
     Route: 058
     Dates: start: 20110101, end: 20110207

REACTIONS (3)
  - HYPERGLYCAEMIA [None]
  - DIABETIC KETOACIDOSIS [None]
  - COMA [None]
